FAERS Safety Report 9825145 (Version 1)
Quarter: 2013Q4

REPORT INFORMATION
  Report Type: Spontaneous
  Country: US (occurrence: None)
  Receive Date: 20131028
  Receipt Date: 20131028
  Transmission Date: 20140711
  Serious: Yes (Other)
  Sender: FDA-Public Use
  Company Number: 2013US001125

PATIENT
  Age: 62 Year
  Sex: Male
  Weight: 79.4 kg

DRUGS (2)
  1. ICLUSIG (PONATINIB) TABLET, 45MG [Suspect]
     Indication: CHRONIC MYELOID LEUKAEMIA
     Dosage: 45 MG, QD, ORAL
     Route: 048
     Dates: start: 20130205, end: 20130211
  2. ATENOLOL (ATENOLOL) [Concomitant]

REACTIONS (7)
  - Pain of skin [None]
  - Skin discolouration [None]
  - Back pain [None]
  - Headache [None]
  - Rash [None]
  - Arthralgia [None]
  - Abdominal pain upper [None]
